FAERS Safety Report 5132427-7 (Version None)
Quarter: 2006Q4

REPORT INFORMATION
  Report Type: 
  Country: None (occurrence: None)
  Receive Date: 20061017
  Receipt Date: 20061004
  Transmission Date: 20070319
  Serious: Yes (Death, Hospitalization)
  Sender: FDA-Public Use
  Company Number: 2006107535

PATIENT
  Age: 71 Year
  Sex: Male
  Weight: 50.4 kg

DRUGS (16)
  1. VFEND [Suspect]
     Indication: ASPERGILLOSIS
     Dosage: 140 MG (2 IN 1 D), INTRAVENOUS
     Route: 042
     Dates: start: 20060819, end: 20060826
  2. MAXIPIME [Suspect]
     Indication: BACTERIAL INFECTION
     Dosage: 4 GRAM (2 IN 1 D), INTRAVENOUS
     Route: 042
     Dates: start: 20060820, end: 20060826
  3. PURSENNID (SENNA LEAF) [Concomitant]
  4. OMEPRAZOLE [Concomitant]
  5. TAMSULOSIN HCL [Concomitant]
  6. LOXONIN (LOXOPROFEN SODIUM) [Concomitant]
  7. APLACE (TROXIPIDE) [Concomitant]
  8. MAGNESIUM OXIDE (MAGNESIUM OXIDE) [Concomitant]
  9. DAI-KENCHU-TO (DAI-KENCHU-TO) [Concomitant]
  10. TETRAMIDE (MIANSERIN HYDROCHLORIDE) [Concomitant]
  11. DOGMATYL (SULPIRIDE) [Concomitant]
  12. GRAMALIL (TIAPRIDE HYDROCHLORIDE) [Concomitant]
  13. TRAZODONE HCL [Concomitant]
  14. LENDORM [Concomitant]
  15. DEPAS (ETIZOLAM) [Concomitant]
  16. G-CSF (GRANULOCYTE COLONY STIMULATING FACTOR) [Concomitant]

REACTIONS (5)
  - BRONCHOPULMONARY ASPERGILLOSIS [None]
  - CONDITION AGGRAVATED [None]
  - INTERSTITIAL LUNG DISEASE [None]
  - MULTIPLE MYELOMA [None]
  - PNEUMOCYSTIS JIROVECI PNEUMONIA [None]
